FAERS Safety Report 24001797 (Version 1)
Quarter: 2024Q2

REPORT INFORMATION
  Report Type: Spontaneous
  Country: IT (occurrence: IT)
  Receive Date: 20240622
  Receipt Date: 20240622
  Transmission Date: 20240715
  Serious: Yes (Other)
  Sender: FDA-Public Use
  Company Number: None

PATIENT
  Age: 24 Year
  Sex: Female
  Weight: 75 kg

DRUGS (3)
  1. ULTOMIRIS [Suspect]
     Active Substance: RAVULIZUMAB-CWVZ
     Indication: Myasthenia gravis
     Dosage: 2700 MILLIGRAM
     Route: 042
     Dates: start: 20230906
  2. ULTOMIRIS [Suspect]
     Active Substance: RAVULIZUMAB-CWVZ
     Dosage: 3300 MILLIGRAM, Q56, EVERY 8 WEEKS
     Route: 042
     Dates: start: 20230906
  3. PREDNISONE [Concomitant]
     Active Substance: PREDNISONE
     Indication: Product used for unknown indication
     Dosage: 15 MILLIGRAM, QD
     Route: 048

REACTIONS (2)
  - Myasthenia gravis [Recovering/Resolving]
  - Quality of life decreased [Recovering/Resolving]

NARRATIVE: CASE EVENT DATE: 20240525
